FAERS Safety Report 7950275-7 (Version None)
Quarter: 2011Q4

REPORT INFORMATION
  Report Type: 
  Country: None (occurrence: None)
  Receive Date: 20111130
  Receipt Date: 20111122
  Transmission Date: 20120403
  Serious: Yes (Hospitalization, Disabling, Other)
  Sender: FDA-Public Use
  Company Number: NL-ASTRAZENECA-2011SE71111

PATIENT
  Age: 63 Year
  Sex: Female

DRUGS (3)
  1. ATORVASTATIN CALCIUM [Suspect]
     Indication: CEREBROVASCULAR ACCIDENT
     Route: 048
     Dates: start: 20090101, end: 20110301
  2. OMEPRAZOLE [Suspect]
     Indication: HIATUS HERNIA
     Route: 048
     Dates: start: 20080101, end: 20111001
  3. THYRAX DUOTAB [Concomitant]
     Route: 048
     Dates: start: 20000101

REACTIONS (3)
  - HEPATOTOXICITY [None]
  - GASTROINTESTINAL DISORDER [None]
  - OEDEMA [None]
